FAERS Safety Report 24248574 (Version 3)
Quarter: 2024Q4

REPORT INFORMATION
  Report Type: Spontaneous
  Country: SG (occurrence: SG)
  Receive Date: 20240826
  Receipt Date: 20241219
  Transmission Date: 20250115
  Serious: Yes (Death, Hospitalization, Other)
  Sender: ROCHE
  Company Number: SG-ROCHE-10000056743

PATIENT
  Age: 66 Year
  Sex: Male

DRUGS (2)
  1. TECENTRIQ [Suspect]
     Active Substance: ATEZOLIZUMAB
     Indication: Product used for unknown indication
     Route: 065
  2. AVASTIN [Suspect]
     Active Substance: BEVACIZUMAB
     Indication: Product used for unknown indication
     Route: 065

REACTIONS (3)
  - Abdominal distension [Unknown]
  - Metastatic neoplasm [Unknown]
  - Death [Fatal]

NARRATIVE: CASE EVENT DATE: 20240913
